FAERS Safety Report 8340694 (Version 4)
Quarter: 2012Q4

REPORT INFORMATION
  Report Type: 
  Country: US (occurrence: US)
  Receive Date: 20120118
  Receipt Date: 20121004
  Transmission Date: 20130627
  Serious: Yes (Other)
  Sender: FDA-Public Use
  Company Number: US-BIOGENIDEC-2012BI001155

PATIENT
  Age: 55 None
  Sex: Female

DRUGS (1)
  1. AVONEX [Suspect]
     Indication: MULTIPLE SCLEROSIS
     Route: 030
     Dates: start: 19961001

REACTIONS (3)
  - Malignant melanoma [Recovered/Resolved]
  - Breast cancer [Recovered/Resolved]
  - Breast cancer recurrent [Recovered/Resolved]
